FAERS Safety Report 8922648 (Version 4)
Quarter: 2016Q1

REPORT INFORMATION
  Report Type: Spontaneous
  Country: US (occurrence: US)
  Receive Date: 20121123
  Receipt Date: 20160212
  Transmission Date: 20160526
  Serious: Yes (Hospitalization, Other)
  Sender: FDA-Public Use
  Company Number: US-PFIZER INC-2012291100

PATIENT
  Age: 47 Year
  Sex: Female
  Weight: 47.17 kg

DRUGS (17)
  1. XALKORI [Interacting]
     Active Substance: CRIZOTINIB
     Dosage: 400 MG, 1X/DAY
     Dates: start: 20121128, end: 20130118
  2. PROTONIX [Concomitant]
     Active Substance: PANTOPRAZOLE SODIUM
     Indication: GASTROOESOPHAGEAL REFLUX DISEASE
     Dosage: 40 MG, 2X/DAY
  3. ATIVAN [Concomitant]
     Active Substance: LORAZEPAM
     Indication: VOMITING
  4. XALKORI [Interacting]
     Active Substance: CRIZOTINIB
     Dosage: 200 MG II TABLETS ORALLY IN EVENING
     Dates: start: 20121120
  5. PROTONIX [Concomitant]
     Active Substance: PANTOPRAZOLE SODIUM
     Dosage: 20 MG, 2X/DAY
     Dates: end: 20121029
  6. PEPCID [Concomitant]
     Active Substance: FAMOTIDINE
     Dosage: 20 MG, 2X/DAY
  7. ADVAIR HFA [Concomitant]
     Active Substance: FLUTICASONE PROPIONATE\SALMETEROL XINAFOATE
     Indication: ASTHMA
     Dosage: FLUTICASONE PROPIONATE 250, SALMETEROL XINAFOATE 50 ONE PUFF 2X/DAY
  8. ADVAIR DISKUS [Concomitant]
     Active Substance: FLUTICASONE PROPIONATE\SALMETEROL XINAFOATE
     Dosage: 250/50 ONE PUFF PO BID
  9. XALKORI [Interacting]
     Active Substance: CRIZOTINIB
     Dosage: 250 MG, 1X/DAY
     Route: 048
     Dates: start: 20121015
  10. YASMIN [Concomitant]
     Active Substance: DROSPIRENONE\ETHINYL ESTRADIOL
     Dosage: 1 DF, 1X/DAY (28, ONE TABLET DAILY)
  11. ATIVAN [Concomitant]
     Active Substance: LORAZEPAM
     Indication: NAUSEA
     Dosage: 0.5 MG, Q 6 H AS NEEDED
     Route: 048
  12. XALKORI [Suspect]
     Active Substance: CRIZOTINIB
     Indication: NON-SMALL CELL LUNG CANCER METASTATIC
     Dosage: 250 MG, 2X/DAY
     Route: 048
     Dates: start: 20120927, end: 20121015
  13. XALKORI [Interacting]
     Active Substance: CRIZOTINIB
     Dosage: 500 MG, 1X/DAY
  14. KEPPRA [Interacting]
     Active Substance: LEVETIRACETAM
     Indication: PROPHYLAXIS
     Dosage: 500 MG, 2X/DAY
     Dates: start: 20120902, end: 20121029
  15. OXYCODONE [Concomitant]
     Active Substance: OXYCODONE
     Dosage: 5 MG, Q 4 HRS PM AS NEEDED
     Route: 048
  16. CARAFATE [Concomitant]
     Active Substance: SUCRALFATE
     Dosage: 1 G, UNK A.C
     Route: 048
  17. QUIZARTINIB [Concomitant]
     Active Substance: QUIZARTINIB

REACTIONS (10)
  - Vomiting [Recovered/Resolved]
  - Blood alkaline phosphatase increased [Recovered/Resolved]
  - Transaminases increased [Recovering/Resolving]
  - Oesophagitis ulcerative [Unknown]
  - Nausea [Recovering/Resolving]
  - Constipation [Unknown]
  - Photopsia [Unknown]
  - Abdominal pain [Recovered/Resolved]
  - Diarrhoea [Unknown]
  - Drug interaction [Unknown]

NARRATIVE: CASE EVENT DATE: 20121027
